FAERS Safety Report 20792507 (Version 1)
Quarter: 2022Q2

REPORT INFORMATION
  Report Type: Report from Study
  Country: US (occurrence: US)
  Receive Date: 20220506
  Receipt Date: 20220506
  Transmission Date: 20220721
  Serious: Yes (Other)
  Sender: FDA-Public Use
  Company Number: US-ABBVIE-22K-163-4382010-00

PATIENT
  Sex: Female

DRUGS (2)
  1. HUMIRA [Suspect]
     Active Substance: ADALIMUMAB
     Indication: Colitis ulcerative
     Dosage: CITRATE FREE
     Route: 058
  2. LIALDA [Suspect]
     Active Substance: MESALAMINE
     Indication: Product used for unknown indication
     Route: 065

REACTIONS (8)
  - Plasma cell myeloma [Unknown]
  - Breast cancer female [Unknown]
  - Blood immunoglobulin A increased [Unknown]
  - Fatigue [Unknown]
  - Paraesthesia [Unknown]
  - Visual impairment [Unknown]
  - Dizziness [Unknown]
  - Hepatic enzyme increased [Unknown]
